FAERS Safety Report 4494379-2 (Version None)
Quarter: 2004Q4

REPORT INFORMATION
  Report Type: 
  Country: None (occurrence: None)
  Receive Date: 20041105
  Receipt Date: 20041012
  Transmission Date: 20050328
  Serious: Yes (Hospitalization, Other)
  Sender: FDA-Public Use
  Company Number: PHEH2004US10939

PATIENT
  Age: 69 Year
  Sex: Male

DRUGS (18)
  1. TEGRETOL [Suspect]
     Dosage: 400 MG, TID
     Route: 048
     Dates: end: 20040928
  2. METFORMIN [Concomitant]
  3. VASOTEC [Concomitant]
  4. HYTRIN [Concomitant]
  5. LASIX [Concomitant]
  6. INSULIN [Concomitant]
  7. ERGOCALCIFEROL [Concomitant]
  8. ASCORBIC ACID [Concomitant]
  9. TOCOPHEROL CONCENTRATE CAP [Concomitant]
  10. FOLIC ACID [Concomitant]
  11. RETINOL [Concomitant]
  12. VITAMIN B COMPLEX CAP [Concomitant]
  13. VITAMIN E [Concomitant]
  14. VITAMIN C [Concomitant]
  15. OXYCODONE [Concomitant]
  16. CLAVULANATE POTASSIUM [Concomitant]
     Route: 042
  17. AMOXICILLIN TRIHYDRATE [Concomitant]
     Route: 042
  18. ASPIRIN [Concomitant]

REACTIONS (7)
  - CONFUSIONAL STATE [None]
  - DYSKINESIA [None]
  - HALLUCINATION [None]
  - HYPERTENSION [None]
  - MEDICATION ERROR [None]
  - MUSCLE SPASMS [None]
  - URINARY INCONTINENCE [None]
